FAERS Safety Report 5647203-6 (Version None)
Quarter: 2008Q1

REPORT INFORMATION
  Report Type: 
  Country: None (occurrence: None)
  Receive Date: 20080228
  Receipt Date: 20080228
  Transmission Date: 20080703
  Serious: Yes (Hospitalization)
  Sender: FDA-Public Use
  Company Number: None

PATIENT
  Sex: Female
  Weight: 57.6068 kg

DRUGS (1)
  1. LAMOTRIGINE [Suspect]
     Indication: BIPOLAR DISORDER
     Dosage: 150MG DAILY PO
     Route: 048
     Dates: start: 20080103, end: 20080106

REACTIONS (4)
  - CONJUNCTIVITIS [None]
  - PHARYNGITIS [None]
  - STEVENS-JOHNSON SYNDROME [None]
  - STOMATITIS [None]
